FAERS Safety Report 19725965 (Version 1)
Quarter: 2021Q3

REPORT INFORMATION
  Report Type: Not Available
  Country: US (occurrence: US)
  Receive Date: 20210819
  Receipt Date: 20210819
  Transmission Date: 20211014
  Serious: No
  Sender: FDA-Public Use
  Company Number: US-MANNKIND CORPORATION-2020MK000099

PATIENT
  Sex: Male
  Weight: 116.13 kg

DRUGS (16)
  1. PROVENTIL HFA [Concomitant]
     Active Substance: ALBUTEROL SULFATE
     Indication: CHRONIC OBSTRUCTIVE PULMONARY DISEASE
  2. FARXIGA [Concomitant]
     Active Substance: DAPAGLIFLOZIN PROPANEDIOL
     Indication: DIABETES MELLITUS
  3. TOUJEO SOLOSTART [Concomitant]
     Indication: DIABETES MELLITUS
  4. AFREZZA [Suspect]
     Active Substance: INSULIN HUMAN
     Dates: start: 20200716, end: 20200819
  5. AFREZZA [Suspect]
     Active Substance: INSULIN HUMAN
     Dates: start: 20200819, end: 20200914
  6. LOVAZA [Concomitant]
     Active Substance: OMEGA-3-ACID ETHYL ESTERS
     Indication: BLOOD TRIGLYCERIDES INCREASED
  7. AFREZZA [Suspect]
     Active Substance: INSULIN HUMAN
     Dates: start: 20200819, end: 20200914
  8. AFREZZA [Suspect]
     Active Substance: INSULIN HUMAN
     Dates: start: 20200819, end: 20200914
  9. SINGULAIR [Concomitant]
     Active Substance: MONTELUKAST SODIUM
     Indication: CHRONIC OBSTRUCTIVE PULMONARY DISEASE
  10. ASPIRIN. [Concomitant]
     Active Substance: ASPIRIN
     Indication: CARDIOVASCULAR EVENT PROPHYLAXIS
  11. AFREZZA [Suspect]
     Active Substance: INSULIN HUMAN
     Dates: start: 20200716, end: 20200819
  12. NEURONTIN [Concomitant]
     Active Substance: GABAPENTIN
     Indication: NEUROPATHY PERIPHERAL
  13. ASMANEX [Concomitant]
     Active Substance: MOMETASONE FUROATE
     Indication: CHRONIC OBSTRUCTIVE PULMONARY DISEASE
  14. TRELEGY ELLIPTA [Concomitant]
     Active Substance: FLUTICASONE FUROATE\UMECLIDINIUM BROMIDE\VILANTEROL TRIFENATATE
     Indication: CHRONIC OBSTRUCTIVE PULMONARY DISEASE
  15. AFREZZA [Suspect]
     Active Substance: INSULIN HUMAN
     Indication: DIABETES MELLITUS
     Dates: start: 20200716, end: 20200819
  16. CILOSTAZOL. [Concomitant]
     Active Substance: CILOSTAZOL
     Indication: CHRONIC OBSTRUCTIVE PULMONARY DISEASE

REACTIONS (1)
  - Drug ineffective [Unknown]
